FAERS Safety Report 11867406 (Version 2)
Quarter: 2016Q1

REPORT INFORMATION
  Report Type: Report from Study
  Country: US (occurrence: US)
  Receive Date: 20151224
  Receipt Date: 20160111
  Transmission Date: 20160526
  Serious: Yes (Hospitalization)
  Sender: FDA-Public Use
  Company Number: US-GILEAD-2015-0189038

PATIENT
  Age: 64 Year
  Sex: Male
  Weight: 73 kg

DRUGS (13)
  1. XIFAXAN [Concomitant]
     Active Substance: RIFAXIMIN
  2. TACROLIMUS. [Concomitant]
     Active Substance: TACROLIMUS
  3. CALCIUM ACETATE. [Concomitant]
     Active Substance: CALCIUM ACETATE
  4. LEVETIRACETAM. [Concomitant]
     Active Substance: LEVETIRACETAM
  5. WARFARIN [Concomitant]
     Active Substance: WARFARIN
  6. MEGESTROL [Concomitant]
     Active Substance: MEGESTROL
  7. AMLODIPINE [Concomitant]
     Active Substance: AMLODIPINE BESYLATE
  8. MYFORTIC [Concomitant]
     Active Substance: MYCOPHENOLATE SODIUM
  9. ALPRAZOLAM. [Concomitant]
     Active Substance: ALPRAZOLAM
  10. LACTULOSE. [Concomitant]
     Active Substance: LACTULOSE
  11. SOFOSBUVIR [Suspect]
     Active Substance: SOFOSBUVIR
     Indication: HEPATITIS C
     Dosage: 400 MG, QD
     Route: 048
     Dates: start: 20140926, end: 20150313
  12. RIBAVIRIN. [Suspect]
     Active Substance: RIBAVIRIN
     Indication: HEPATITIS C
     Dosage: 200 MG, QOD
     Route: 048
     Dates: start: 20140926, end: 20150313
  13. GABAPENTIN. [Concomitant]
     Active Substance: GABAPENTIN

REACTIONS (1)
  - Malaise [Unknown]
